FAERS Safety Report 8343219-X (Version None)
Quarter: 2012Q2

REPORT INFORMATION
  Report Type: 
  Country: None (occurrence: None)
  Receive Date: 20120508
  Receipt Date: 20120501
  Transmission Date: 20120825
  Serious: Yes (Hospitalization, Other)
  Sender: FDA-Public Use
  Company Number: US-BAYER-2012-003768

PATIENT
  Age: 30 Year
  Sex: Female
  Weight: 90.703 kg

DRUGS (12)
  1. TOPAMAX [Concomitant]
     Indication: MIGRAINE
  2. SYMBICORT [Concomitant]
     Indication: ASTHMA
  3. YAZ [Suspect]
     Indication: PREMENSTRUAL SYNDROME
     Dosage: UNK
     Route: 048
     Dates: start: 20060101, end: 20090101
  4. ZOLOFT [Concomitant]
  5. PROAIR HFA [Concomitant]
     Indication: ASTHMA
  6. ACCOLATE [Concomitant]
     Indication: ASTHMA
  7. MULTI-VITAMIN [Concomitant]
  8. NASACORT [Concomitant]
     Indication: MULTIPLE ALLERGIES
  9. BENTYL [Concomitant]
  10. YASMIN [Suspect]
     Indication: PREMENSTRUAL SYNDROME
     Dosage: UNK
     Route: 048
     Dates: start: 20060101, end: 20090101
  11. XANAX [Concomitant]
  12. NEXIUM [Concomitant]
     Dosage: 400 MG, UNK

REACTIONS (4)
  - CHOLECYSTITIS CHRONIC [None]
  - CHOLELITHIASIS [None]
  - PAIN [None]
  - BILIARY DYSKINESIA [None]
